FAERS Safety Report 4518347-7 (Version None)
Quarter: 2004Q4

REPORT INFORMATION
  Report Type: 
  Country: None (occurrence: None)
  Receive Date: 20041202
  Receipt Date: 20041123
  Transmission Date: 20050328
  Serious: Yes (Death)
  Sender: FDA-Public Use
  Company Number: 2004UW24082

PATIENT
  Age: 43 Year
  Sex: Male
  Weight: 98.429 kg

DRUGS (5)
  1. MERREM [Suspect]
     Dosage: 1 G Q8H IV
     Route: 042
     Dates: start: 20041109
  2. LEVAQUIN [Concomitant]
  3. FLAGYL [Concomitant]
  4. VANCOMYCIN [Concomitant]
  5. VORICONAZOLE [Concomitant]

REACTIONS (1)
  - DEATH [None]
